FAERS Safety Report 23072876 (Version 1)
Quarter: 2023Q4

REPORT INFORMATION
  Report Type: Spontaneous
  Country: ES (occurrence: ES)
  Receive Date: 20231017
  Receipt Date: 20231017
  Transmission Date: 20240109
  Serious: Yes (Other)
  Sender: FDA-Public Use
  Company Number: None

PATIENT
  Age: 47 Year
  Sex: Female

DRUGS (7)
  1. RINVOQ [Suspect]
     Active Substance: UPADACITINIB
     Indication: Spondyloarthropathy
     Route: 048
     Dates: start: 20221018
  2. ALPRAZOLAM [Concomitant]
     Active Substance: ALPRAZOLAM
     Indication: Product used for unknown indication
     Dosage: 99A
     Route: 048
     Dates: start: 20200218
  3. RIVOTRIL [Concomitant]
     Active Substance: CLONAZEPAM
     Indication: Product used for unknown indication
     Dosage: 60
     Route: 048
     Dates: start: 20200218
  4. OMEPRAZOLE [Concomitant]
     Active Substance: OMEPRAZOLE
     Indication: Product used for unknown indication
     Dosage: 2141A
     Route: 048
     Dates: start: 20170302
  5. MIRTAZAPINA UR [Concomitant]
     Indication: Product used for unknown indication
     Dosage: 2704A
     Route: 048
     Dates: start: 20200630
  6. DESVENLAFAXINE [Concomitant]
     Active Substance: DESVENLAFAXINE
     Indication: Product used for unknown indication
     Dosage: 8296A
     Route: 048
     Dates: start: 20221209
  7. OXICODONA/NALOXONA TEVA [Concomitant]
     Indication: Product used for unknown indication
     Route: 048
     Dates: start: 20230306

REACTIONS (1)
  - Weight increased [Unknown]

NARRATIVE: CASE EVENT DATE: 20230516
